FAERS Safety Report 7074048-5 (Version None)
Quarter: 2010Q4

REPORT INFORMATION
  Report Type: 
  Country: None (occurrence: None)
  Receive Date: 20101029
  Receipt Date: 20101021
  Transmission Date: 20110411
  Serious: Yes (Other)
  Sender: FDA-Public Use
  Company Number: CHPA2010US16576

PATIENT
  Age: 47 Year
  Sex: Female
  Weight: 56.689 kg

DRUGS (3)
  1. EXCEDRIN (MIGRAINE) [Suspect]
     Indication: MUSCLE DISORDER
     Dosage: 2 TABLETS, 2 - 3 TIMES A DAY
     Route: 048
  2. EXCEDRIN (MIGRAINE) [Suspect]
     Indication: MIGRAINE
  3. EXCEDRIN (MIGRAINE) [Suspect]
     Indication: FIBROMYALGIA

REACTIONS (3)
  - INTENTIONAL DRUG MISUSE [None]
  - OFF LABEL USE [None]
  - SPONDYLITIS [None]
